FAERS Safety Report 19693269 (Version 1)
Quarter: 2021Q3

REPORT INFORMATION
  Report Type: Spontaneous
  Country: US (occurrence: US)
  Receive Date: 20210812
  Receipt Date: 20210812
  Transmission Date: 20211014
  Serious: No
  Sender: FDA-Public Use
  Company Number: US-SA-2021SA264154

PATIENT
  Age: 37 Year
  Sex: Female

DRUGS (9)
  1. BUSPIRONE [Concomitant]
     Active Substance: BUSPIRONE HYDROCHLORIDE
  2. CLOBETASOL [Concomitant]
     Active Substance: CLOBETASOL
  3. CLONAZEPAM. [Concomitant]
     Active Substance: CLONAZEPAM
  4. THYROID [Concomitant]
     Active Substance: LEVOTHYROXINE\LIOTHYRONINE
  5. DULOXETINE. [Concomitant]
     Active Substance: DULOXETINE
  6. PREGABALIN. [Concomitant]
     Active Substance: PREGABALIN
  7. ESZOPICLONE. [Concomitant]
     Active Substance: ESZOPICLONE
  8. LEVOCETIRIZINE [Concomitant]
     Active Substance: LEVOCETIRIZINE
  9. DUPIXENT [Suspect]
     Active Substance: DUPILUMAB
     Indication: DERMATITIS ATOPIC
     Dosage: 300 MG, QOW
     Route: 058
     Dates: start: 20210311

REACTIONS (4)
  - Arthralgia [Unknown]
  - Skin exfoliation [Unknown]
  - Product dose omission issue [Unknown]
  - Dermatitis atopic [Unknown]

NARRATIVE: CASE EVENT DATE: 202107
